FAERS Safety Report 19998853 (Version 1)
Quarter: 2021Q4

REPORT INFORMATION
  Report Type: Report from Study
  Country: CA (occurrence: CA)
  Receive Date: 20211027
  Receipt Date: 20211027
  Transmission Date: 20220304
  Serious: Yes (Other)
  Sender: FDA-Public Use
  Company Number: CA-SUN PHARMACEUTICAL INDUSTRIES LTD-2021R1-315322

PATIENT
  Age: 27 Month
  Sex: Male

DRUGS (2)
  1. PREDNISONE [Suspect]
     Active Substance: PREDNISONE
     Indication: Kawasaki^s disease
     Route: 048
  2. IVMP [Concomitant]
     Indication: Kawasaki^s disease
     Dosage: UNK
     Route: 042

REACTIONS (1)
  - Disease recurrence [Unknown]
